FAERS Safety Report 17604209 (Version 3)
Quarter: 2020Q2

REPORT INFORMATION
  Report Type: Spontaneous
  Country: US (occurrence: US)
  Receive Date: 20200331
  Receipt Date: 20200605
  Transmission Date: 20200713
  Serious: Yes (Other)
  Sender: FDA-Public Use
  Company Number: US-PFIZER INC-2020124489

PATIENT
  Age: 75 Year
  Sex: Female
  Weight: 74.84 kg

DRUGS (2)
  1. ESTRING [Suspect]
     Active Substance: ESTRADIOL
     Indication: VULVOVAGINAL DRYNESS
     Dosage: UNK (FOR A COUPLE OF YEARS)
  2. ESTRING [Suspect]
     Active Substance: ESTRADIOL
     Dosage: 2 MG (EVERY 3 MONTHS)
     Route: 067

REACTIONS (4)
  - Condition aggravated [Unknown]
  - Contraindicated product administered [Unknown]
  - Cystitis [Recovered/Resolved]
  - Bladder pain [Unknown]

NARRATIVE: CASE EVENT DATE: 202003
